FAERS Safety Report 6646022-1 (Version None)
Quarter: 2010Q1

REPORT INFORMATION
  Report Type: 
  Country: None (occurrence: None)
  Receive Date: 20100323
  Receipt Date: 20100315
  Transmission Date: 20100710
  Serious: Yes (Other)
  Sender: FDA-Public Use
  Company Number: IL-PFIZER INC-2010033314

PATIENT
  Age: 41 Year
  Sex: Male

DRUGS (3)
  1. LIPITOR [Suspect]
     Indication: DYSLIPIDAEMIA
     Dosage: 80 MG, 1X/DAY
     Route: 048
  2. NORMITEN [Concomitant]
     Dosage: UNK
  3. ASPIRIN [Concomitant]

REACTIONS (1)
  - PARAESTHESIA [None]
